FAERS Safety Report 6510796-0 (Version None)
Quarter: 2009Q4

REPORT INFORMATION
  Report Type: 
  Country: None (occurrence: None)
  Receive Date: 20091222
  Receipt Date: 20090112
  Transmission Date: 20100525
  Serious: No
  Sender: FDA-Public Use
  Company Number: US-ASTRAZENECA-2009UW00990

PATIENT
  Age: 685 Month
  Sex: Female
  Weight: 68 kg

DRUGS (9)
  1. CRESTOR [Suspect]
     Indication: HYPERCHOLESTEROLAEMIA
     Dosage: 10 MG
     Route: 048
     Dates: start: 20060101
  2. DIOVAN [Concomitant]
  3. SINGULAIR [Concomitant]
  4. SYMBICORT [Concomitant]
  5. ZOPINEX [Concomitant]
  6. COPAXIN INJ [Concomitant]
  7. PROVIGIL [Concomitant]
  8. KLONOPIN [Concomitant]
  9. ALLEGRA [Concomitant]

REACTIONS (1)
  - MUSCLE SPASMS [None]
